FAERS Safety Report 4701724-9 (Version None)
Quarter: 2005Q2

REPORT INFORMATION
  Report Type: 
  Country: None (occurrence: None)
  Receive Date: 20050627
  Receipt Date: 20050614
  Transmission Date: 20051028
  Serious: Yes (Hospitalization)
  Sender: FDA-Public Use
  Company Number: 2005088995

PATIENT
  Age: 42 Year
  Sex: Female
  Weight: 60 kg

DRUGS (2)
  1. SOBELIN                       (CLINDAMYCIN PHOSPHATE) [Suspect]
     Indication: TOOTH INFECTION
     Dosage: ORAL
     Route: 048
     Dates: start: 20050610, end: 20050612
  2. CONTRACEPTIVE       (CONTRACEPTIVE, UNSPECIFIED) [Concomitant]

REACTIONS (4)
  - EXANTHEM [None]
  - LYMPHADENOPATHY [None]
  - PYREXIA [None]
  - RASH MACULO-PAPULAR [None]
